FAERS Safety Report 10264635 (Version 1)
Quarter: 2014Q2

REPORT INFORMATION
  Report Type: Spontaneous
  Country: US (occurrence: None)
  Receive Date: 20140624
  Receipt Date: 20140624
  Transmission Date: 20141212
  Serious: Yes (Other)
  Sender: FDA-Public Use
  Company Number: 2014US00553

PATIENT
  Age: 19 Year
  Sex: 0

DRUGS (3)
  1. IRINOTECAN [Suspect]
     Indication: EPENDYMOMA MALIGNANT
     Dosage: 90 MG/M2/DOSE, ORAL
     Route: 048
  2. TEMSIROLIMUS [Suspect]
     Indication: EPENDYMOMA MALIGNANT
     Dosage: 35 MG/M2/DOSE IV, INTRAVENOUS
     Route: 042
  3. TEMOZOLOMIDE [Suspect]
     Indication: EPENDYMOMA MALIGNANT
     Dosage: 125 MG/M2/DOSE PO, ORAL
     Route: 048

REACTIONS (5)
  - Hydrocephalus [None]
  - Haemorrhage [None]
  - Headache [None]
  - Vomiting [None]
  - Asthenia [None]
